FAERS Safety Report 5279871-5 (Version None)
Quarter: 2007Q1

REPORT INFORMATION
  Report Type: 
  Country: None (occurrence: None)
  Receive Date: 20061218
  Receipt Date: 20060407
  Transmission Date: 20070707
  Serious: Yes (Hospitalization, Other)
  Sender: FDA-Public Use
  Company Number: US200604000753

PATIENT
  Age: 59 Year
  Sex: Male

DRUGS (4)
  1. HUMULIN 70/30 [Suspect]
     Indication: DIABETES MELLITUS NON-INSULIN-DEPENDENT
     Dosage: 40 U/ML, 2/D
     Dates: start: 20040101
  2. GLUCOPHAGE [Concomitant]
  3. NEURONTIN [Concomitant]
  4. VALIUM /NET/ (DIAZEPAM) [Concomitant]

REACTIONS (10)
  - BLISTER [None]
  - DYSPNOEA [None]
  - FEELING ABNORMAL [None]
  - HYPERSENSITIVITY [None]
  - MALAISE [None]
  - MUSCLE RIGIDITY [None]
  - RASH [None]
  - SWELLING FACE [None]
  - URTICARIA [None]
  - VISUAL DISTURBANCE [None]
